FAERS Safety Report 24385153 (Version 3)
Quarter: 2024Q4

REPORT INFORMATION
  Report Type: Report from Study
  Country: CN (occurrence: CN)
  Receive Date: 20241001
  Receipt Date: 20241218
  Transmission Date: 20250115
  Serious: Yes (Hospitalization)
  Sender: PFIZER
  Company Number: CN-PFIZER INC-PV202400126463

PATIENT
  Age: 66 Year
  Sex: Male
  Weight: 63.5 kg

DRUGS (6)
  1. ABROCITINIB [Suspect]
     Active Substance: ABROCITINIB
     Indication: Dermatitis atopic
     Dosage: 100 MG, 1X/DAY
     Route: 048
     Dates: start: 20240815, end: 20240922
  2. METHYLPREDNISOLONE [Suspect]
     Active Substance: METHYLPREDNISOLONE
     Indication: Dermatitis atopic
     Dosage: UNK
     Route: 048
     Dates: start: 20240904, end: 20240914
  3. HYDROXYCHLOROQUINE SULFATE [Concomitant]
     Active Substance: HYDROXYCHLOROQUINE SULFATE
     Indication: Dermatitis atopic
     Dosage: UNK
     Route: 048
     Dates: start: 20240904, end: 20240914
  4. METOPROLOL SUCCINATE [Concomitant]
     Active Substance: METOPROLOL SUCCINATE
     Indication: Hypertension
     Dosage: UNK
     Route: 048
     Dates: start: 2024
  5. ESOMEPRAZOLE MAGNESIUM [Concomitant]
     Active Substance: ESOMEPRAZOLE MAGNESIUM
     Indication: Laryngeal obstruction
     Dosage: ORAL ADMINISTRATION BEFORE MEAL
     Route: 048
     Dates: start: 20240911, end: 20240918
  6. HYDROTALCITE [Concomitant]
     Active Substance: HYDROTALCITE
     Indication: Laryngeal obstruction
     Dosage: CHEW 1 HOUR AFTER MEAL
     Route: 048
     Dates: start: 20240911, end: 20240918

REACTIONS (1)
  - Herpes zoster [Recovering/Resolving]

NARRATIVE: CASE EVENT DATE: 20240919
